FAERS Safety Report 8429029-3 (Version None)
Quarter: 2012Q2

REPORT INFORMATION
  Report Type: 
  Country: None (occurrence: None)
  Receive Date: 20120612
  Receipt Date: 20120608
  Transmission Date: 20120825
  Serious: Yes (Other)
  Sender: FDA-Public Use
  Company Number: SE-SANOFI-AVENTIS-2012SA040862

PATIENT
  Sex: Male

DRUGS (1)
  1. ALFUZOSIN HCL [Suspect]
     Route: 065

REACTIONS (2)
  - CHEILITIS [None]
  - INFECTION SUSCEPTIBILITY INCREASED [None]
